FAERS Safety Report 4580026-8 (Version None)
Quarter: 2005Q1

REPORT INFORMATION
  Report Type: 
  Country: None (occurrence: None)
  Receive Date: 20050214
  Receipt Date: 20040510
  Transmission Date: 20050727
  Serious: Yes (Hospitalization)
  Sender: FDA-Public Use
  Company Number: JP-MERCK-0405USA00642

PATIENT
  Age: 76 Year
  Sex: Male

DRUGS (5)
  1. ZOCOR [Suspect]
     Indication: HYPERLIPIDAEMIA
     Route: 048
     Dates: start: 20020101, end: 20040501
  2. WARFARIN POTASSIUM [Concomitant]
     Route: 048
     Dates: start: 20020101, end: 20040501
  3. OMEPRAZOLE [Concomitant]
     Route: 048
     Dates: start: 20020101, end: 20040501
  4. FAMOTIDINE [Concomitant]
     Route: 048
     Dates: start: 20020101, end: 20040501
  5. ASPIRIN [Concomitant]
     Route: 065

REACTIONS (3)
  - DRUG INTERACTION [None]
  - MYOPATHY [None]
  - RHABDOMYOLYSIS [None]
